FAERS Safety Report 10946419 (Version 1)
Quarter: 2015Q1

REPORT INFORMATION
  Report Type: Spontaneous
  Country: US (occurrence: US)
  Receive Date: 20150323
  Receipt Date: 20150323
  Transmission Date: 20150721
  Serious: Yes (Hospitalization)
  Sender: FDA-Public Use
  Company Number: US-BAYER-2015-038285

PATIENT
  Age: 53 Year
  Sex: Male

DRUGS (2)
  1. DOXYCYCLINE. [Suspect]
     Active Substance: DOXYCYCLINE
     Indication: LYME DISEASE
     Dosage: 100 MG, BID
  2. NAPROXEN SODIUM ({= 220 MG) [Suspect]
     Active Substance: NAPROXEN SODIUM
     Indication: LYME DISEASE
     Dosage: 500 MG, BID

REACTIONS (10)
  - Haemoglobin decreased [None]
  - Rectal haemorrhage [Recovered/Resolved]
  - Hypotension [Recovered/Resolved]
  - Product use issue [None]
  - Abdominal pain upper [Recovered/Resolved]
  - Abdominal tenderness [Recovered/Resolved]
  - Drug interaction [None]
  - Gastric ulcer haemorrhage [Recovered/Resolved]
  - Tachycardia [Recovered/Resolved]
  - Nausea [Recovered/Resolved]
